FAERS Safety Report 5013798-9 (Version None)
Quarter: 2006Q2

REPORT INFORMATION
  Report Type: 
  Country: None (occurrence: None)
  Receive Date: 20060526
  Receipt Date: 20060526
  Transmission Date: 20061013
  Serious: Yes (Hospitalization)
  Sender: FDA-Public Use
  Company Number: None

PATIENT
  Age: 65 Year
  Sex: Female

DRUGS (3)
  1. KETEK [Suspect]
     Indication: SINUSITIS
     Dosage: 2-400 MG TABLETS 1X DAILY  ORAL  (DURATION: DAYS)
     Route: 048
     Dates: end: 20060514
  2. CHOLESTEROL MEDS [Concomitant]
  3. VITAMINS [Concomitant]

REACTIONS (1)
  - RECTAL HAEMORRHAGE [None]
